FAERS Safety Report 25162979 (Version 2)
Quarter: 2025Q2

REPORT INFORMATION
  Report Type: Report from Study
  Country: SE (occurrence: SE)
  Receive Date: 20250404
  Receipt Date: 20250409
  Transmission Date: 20250717
  Serious: Yes (Death, Life-Threatening, Hospitalization)
  Sender: ABBVIE
  Company Number: SE-ABBVIE-6204536

PATIENT
  Age: 79 Year
  Sex: Male
  Weight: 57.5 kg

DRUGS (17)
  1. FOSCARBIDOPA\FOSLEVODOPA [Suspect]
     Active Substance: FOSCARBIDOPA\FOSLEVODOPA
     Indication: Parkinson^s disease
     Route: 058
     Dates: start: 20210304
  2. Beviplex Forte [Concomitant]
     Indication: Nervous system disorder prophylaxis
     Dosage: 1 TABLET
     Route: 048
     Dates: start: 20210304
  3. Cyanocobolamine [Concomitant]
     Indication: Nervous system disorder prophylaxis
     Route: 048
     Dates: start: 20210222
  4. Folate (folic acid) [Concomitant]
     Indication: Nervous system disorder prophylaxis
     Route: 048
     Dates: start: 20210304
  5. MIDODRINE [Concomitant]
     Active Substance: MIDODRINE
     Indication: Orthostatic hypotension
     Route: 048
     Dates: start: 20180719
  6. BETAMETHASONE [Concomitant]
     Active Substance: BETAMETHASONE
     Indication: Seborrhoeic dermatitis
     Dosage: 1 DRAM
     Route: 061
     Dates: start: 20200917
  7. GABAPENTIN [Concomitant]
     Active Substance: GABAPENTIN
     Indication: Neuralgia
     Route: 048
     Dates: start: 20211130
  8. GABAPENTIN [Concomitant]
     Active Substance: GABAPENTIN
     Indication: Neuralgia
     Route: 048
     Dates: start: 20231217
  9. FUROSEMIDE [Concomitant]
     Active Substance: FUROSEMIDE
     Indication: Left ventricular failure
     Route: 048
     Dates: start: 20240709, end: 20240719
  10. FUROSEMIDE [Concomitant]
     Active Substance: FUROSEMIDE
     Indication: Left ventricular failure
     Route: 048
     Dates: start: 20240720
  11. ENALAPRIL [Concomitant]
     Active Substance: ENALAPRIL
     Indication: Left ventricular failure
     Route: 048
     Dates: start: 20240712, end: 20240809
  12. ENALAPRIL [Concomitant]
     Active Substance: ENALAPRIL
     Indication: Left ventricular failure
     Route: 048
     Dates: start: 20240809, end: 20241104
  13. ENALAPRIL [Concomitant]
     Active Substance: ENALAPRIL
     Indication: Left ventricular failure
     Route: 048
     Dates: start: 20241105
  14. BISOPROLOL [Concomitant]
     Active Substance: BISOPROLOL
     Indication: Left ventricular failure
     Route: 048
     Dates: start: 20241105
  15. DAPAGLIFLOZIN [Concomitant]
     Active Substance: DAPAGLIFLOZIN
     Indication: Left ventricular failure
     Route: 048
     Dates: start: 20240809
  16. ROSUVASTATIN [Concomitant]
     Active Substance: ROSUVASTATIN
     Indication: Hyperlipidaemia
     Route: 048
     Dates: start: 20241105
  17. BENSERAZIDE HYDROCHLORIDE\LEVODOPA [Concomitant]
     Active Substance: BENSERAZIDE HYDROCHLORIDE\LEVODOPA
     Indication: Parkinson^s disease
     Route: 048
     Dates: start: 20210304

REACTIONS (1)
  - Intestinal ischaemia [Fatal]

NARRATIVE: CASE EVENT DATE: 20250325
